FAERS Safety Report 10477752 (Version 1)
Quarter: 2014Q3

REPORT INFORMATION
  Report Type: Spontaneous
  Country: GB (occurrence: None)
  Receive Date: 20140924
  Receipt Date: 20140924
  Transmission Date: 20150326
  Serious: Yes (Other)
  Sender: FDA-Public Use
  Company Number: KAD201409-001108

PATIENT
  Age: 29 Year
  Sex: Male
  Weight: 111 kg

DRUGS (10)
  1. E45 (PARAFFIN LIGHT LIQUID, PARAFFIN LIQUID, PARAFFIN SOFT WHITE, WOOL FAT) (PARAFFIN LIGHT LIQUID, PARAFFIN LIQUID, PARAFFIN SOFT WHITE, WOOL FAT) [Concomitant]
  2. HYDROXYZINE (HYDROXYZINE) [Concomitant]
     Active Substance: HYDROXYZINE HYDROCHLORIDE
  3. LORATIDINE (LORATIDINE) [Concomitant]
  4. RIBAVIRIN (RIBAVIRIN) [Suspect]
     Active Substance: RIBAVIRIN
     Indication: CHRONIC HEPATITIS C
     Dates: start: 20140513
  5. CETRIZINEOR [Concomitant]
  6. INTERFERON ALFACON-1 [Suspect]
     Active Substance: INTERFERON ALFACON-1
     Indication: CHRONIC HEPATITIS C
     Dates: start: 20140513
  7. METHANOL (METHANOL) [Concomitant]
  8. PARACETAMOL (PARACETAMOL) [Concomitant]
     Active Substance: ACETAMINOPHEN
  9. IOCANLIDIC ACID (IOCANLIDIC ACID) [Concomitant]
  10. INCIVO [Suspect]
     Active Substance: TELAPREVIR
     Indication: CHRONIC HEPATITIS C
     Route: 048
     Dates: start: 20140513, end: 20140805

REACTIONS (3)
  - Rash pruritic [None]
  - Dry skin [None]
  - Urticaria [None]

NARRATIVE: CASE EVENT DATE: 20140725
